FAERS Safety Report 6751016-1 (Version None)
Quarter: 2010Q2

REPORT INFORMATION
  Report Type: 
  Country: None (occurrence: None)
  Receive Date: 20100602
  Receipt Date: 20100519
  Transmission Date: 20101027
  Serious: Yes (Hospitalization)
  Sender: FDA-Public Use
  Company Number: DE-ASTRAZENECA-2010SE20860

PATIENT
  Age: 957 Month
  Sex: Female
  Weight: 61 kg

DRUGS (14)
  1. IRESSA [Suspect]
     Indication: NON-SMALL CELL LUNG CANCER
     Route: 048
     Dates: start: 20090816, end: 20100507
  2. NOVAMINSULFON [Concomitant]
     Indication: PAIN
     Route: 048
     Dates: start: 20100319
  3. TARGIN [Concomitant]
     Indication: PAIN
     Route: 048
     Dates: start: 20100319
  4. OPIPRAMOL [Concomitant]
     Indication: ANTIDEPRESSANT THERAPY
     Dosage: THREE TIMES A DAY
     Route: 048
     Dates: start: 20100319
  5. ACTONEL [Concomitant]
     Indication: OSTEITIS DEFORMANS
     Dosage: 35 ONE ONCE A WEEK
     Route: 048
     Dates: start: 20100319
  6. VIGANTOLETTEN [Concomitant]
     Indication: VITAMIN D DEFICIENCY
     Dosage: THREE TIMES A WEEK
     Route: 048
     Dates: start: 20100319
  7. MAGNETRANS FORTE [Concomitant]
     Indication: METABOLIC ABNORMALITY MANAGEMENT
     Route: 048
     Dates: start: 20100319
  8. KALINOR RETARD [Concomitant]
     Indication: MINERAL SUPPLEMENTATION
     Dosage: ONCE MORNING, ONCE NOON DAILY
     Route: 048
     Dates: start: 20100319
  9. ZOPIDEM DURA [Concomitant]
     Indication: SLEEP DISORDER
     Route: 048
     Dates: start: 20100319
  10. MACROGOL [Concomitant]
     Indication: CONSTIPATION
     Dosage: ONCE MORNING, ONCE NIGHT DAILY
     Route: 048
  11. PANTOPRAZOLE SODIUM [Concomitant]
     Indication: ABDOMINAL PAIN UPPER
     Route: 048
  12. TRIAMTERENE AND HYDROCHLOROTHIAZIDE [Concomitant]
     Indication: HYPERTENSION
     Dosage: ONCE EVERY MORNING 50/25 MG
     Route: 048
  13. TORASEMIDE [Concomitant]
     Indication: HYPERTENSION
     Dosage: TWO EVERY MORNING AND ONE EVERY NOON
     Route: 048
  14. LEVOTHYROXINE SODIUM [Concomitant]
     Indication: HYPOTHYROIDISM
     Route: 048

REACTIONS (2)
  - OEDEMA PERIPHERAL [None]
  - SKIN INFECTION [None]
